FAERS Safety Report 13711207 (Version 2)
Quarter: 2017Q3

REPORT INFORMATION
  Report Type: Report from Study
  Country: US (occurrence: US)
  Receive Date: 20170703
  Receipt Date: 20170925
  Transmission Date: 20171127
  Serious: Yes (Death, Other)
  Sender: FDA-Public Use
  Company Number: US-BAYER-2017-120259

PATIENT
  Age: 72 Year
  Sex: Male

DRUGS (1)
  1. NEXAVAR [Suspect]
     Active Substance: SORAFENIB
     Indication: ACUTE LEUKAEMIA
     Dosage: 200 MG, BID
     Route: 048

REACTIONS (4)
  - Liver transplant [None]
  - Product use in unapproved indication [None]
  - Off label use [None]
  - Death [Fatal]

NARRATIVE: CASE EVENT DATE: 201706
